FAERS Safety Report 14744283 (Version 1)
Quarter: 2018Q2

REPORT INFORMATION
  Report Type: Spontaneous
  Country: US (occurrence: US)
  Receive Date: 20180411
  Receipt Date: 20180411
  Transmission Date: 20180711
  Serious: Yes (Other)
  Sender: FDA-Public Use
  Company Number: US-ABBVIE-18S-163-2317805-00

PATIENT
  Sex: Male

DRUGS (2)
  1. ANDROGEL [Suspect]
     Active Substance: TESTOSTERONE
     Indication: ANDROGEN REPLACEMENT THERAPY
     Route: 061
     Dates: start: 20130111, end: 20160531
  2. DEPO TESTOSTERONE [Suspect]
     Active Substance: TESTOSTERONE
     Indication: PRODUCT USED FOR UNKNOWN INDICATION
     Route: 065
     Dates: start: 20130111, end: 20160531

REACTIONS (4)
  - Cerebrovascular accident [Unknown]
  - Deep vein thrombosis [Unknown]
  - Emotional distress [Unknown]
  - Pain [Unknown]

NARRATIVE: CASE EVENT DATE: 20160531
